FAERS Safety Report 16316727 (Version 2)
Quarter: 2019Q2

REPORT INFORMATION
  Report Type: Spontaneous
  Country: DE (occurrence: DE)
  Receive Date: 20190515
  Receipt Date: 20190515
  Transmission Date: 20190711
  Serious: Yes (Hospitalization, Other)
  Sender: FDA-Public Use
  Company Number: PHHY2019DE108860

PATIENT
  Sex: Male

DRUGS (2)
  1. VALSARTAN 1 A PHARMA [Suspect]
     Active Substance: VALSARTAN
     Indication: HYPERTENSION
     Dosage: 160 MG, UNK
     Route: 065
     Dates: start: 201402
  2. VALSARTAN 1 A PHARMA PLUS [Suspect]
     Active Substance: VALSARTAN
     Indication: HYPERTENSION
     Dosage: UNK
     Route: 065
     Dates: start: 201402

REACTIONS (7)
  - Urinary tract infection [Unknown]
  - Bladder transitional cell carcinoma [Unknown]
  - Urinary incontinence [Unknown]
  - Bladder tamponade [Unknown]
  - Bladder cancer recurrent [Unknown]
  - Dehydration [Unknown]
  - Bladder spasm [Unknown]

NARRATIVE: CASE EVENT DATE: 201701
